FAERS Safety Report 13704744 (Version 1)
Quarter: 2017Q2

REPORT INFORMATION
  Report Type: Spontaneous
  Country: GB (occurrence: GB)
  Receive Date: 20170630
  Receipt Date: 20170630
  Transmission Date: 20170830
  Serious: Yes (Hospitalization)
  Sender: FDA-Public Use
  Company Number: GB-FRESENIUS KABI-FK201705411

PATIENT
  Age: 52 Year
  Sex: Female

DRUGS (3)
  1. HERCEPTIN [Concomitant]
     Active Substance: TRASTUZUMAB
     Indication: PRODUCT USED FOR UNKNOWN INDICATION
     Route: 065
  2. PACLITAXEL (MANUFACTURER UNKNOWN) [Suspect]
     Active Substance: PACLITAXEL
     Indication: BREAST CANCER
     Route: 065
  3. BENZYDAMINE [Concomitant]
     Active Substance: BENZYDAMINE
     Indication: PRODUCT USED FOR UNKNOWN INDICATION
     Route: 065

REACTIONS (3)
  - Malaise [Unknown]
  - Lower respiratory tract infection [Unknown]
  - Pyrexia [Unknown]
